FAERS Safety Report 24543966 (Version 1)
Quarter: 2024Q4

REPORT INFORMATION
  Report Type: Spontaneous
  Country: US (occurrence: US)
  Receive Date: 20241024
  Receipt Date: 20241024
  Transmission Date: 20250114
  Serious: Yes (Other)
  Sender: AUROBINDO
  Company Number: US-AUROBINDO-AUR-APL-2024-051531

PATIENT
  Age: 50 Year
  Sex: Female

DRUGS (3)
  1. HYDROMORPHONE [Suspect]
     Active Substance: HYDROMORPHONE
     Indication: Spinal decompression
     Dosage: 4 MILLIGRAM, EVERY TWO HOURS (196 MORPHINE MILI-EQUIVALENTS)
     Route: 065
  2. HYDROMORPHONE [Suspect]
     Active Substance: HYDROMORPHONE
     Indication: Analgesic therapy
  3. OXYCODONE [Suspect]
     Active Substance: OXYCODONE
     Indication: Myelopathy
     Dosage: 5 MILLIGRAM, FOUR TIMES/DAY  (20 MORPHINE MILI-EQUIVALENTS)
     Route: 065

REACTIONS (3)
  - Aspiration [Unknown]
  - Empyema [Unknown]
  - Staphylococcal infection [Unknown]
